FAERS Safety Report 19823771 (Version 11)
Quarter: 2021Q4

REPORT INFORMATION
  Report Type: Report from Study
  Country: US (occurrence: US)
  Receive Date: 20210913
  Receipt Date: 20211229
  Transmission Date: 20220303
  Serious: Yes (Other)
  Sender: FDA-Public Use
  Company Number: NVSC2021US207120

PATIENT
  Sex: Female
  Weight: 150 kg

DRUGS (4)
  1. TREPROSTINIL [Suspect]
     Active Substance: TREPROSTINIL
     Indication: Pulmonary arterial hypertension
     Dosage: 98 NG/KG/MIN
     Route: 042
     Dates: start: 20210831
  2. SILDENAFIL CITRATE [Concomitant]
     Active Substance: SILDENAFIL CITRATE
     Indication: Product used for unknown indication
     Dosage: UNK
     Route: 065
  3. AMBRISENTAN [Concomitant]
     Active Substance: AMBRISENTAN
     Indication: Product used for unknown indication
     Dosage: UNK
     Route: 065
  4. OPSUMIT [Concomitant]
     Active Substance: MACITENTAN
     Indication: Product used for unknown indication
     Dosage: UNK
     Route: 065

REACTIONS (16)
  - Complication associated with device [Unknown]
  - Medical device site haemorrhage [Unknown]
  - Feeling abnormal [Unknown]
  - Palpitations [Unknown]
  - Tachycardia [Unknown]
  - Nasal congestion [Unknown]
  - Dyspnoea [Unknown]
  - Insomnia [Unknown]
  - Condition aggravated [Unknown]
  - Flushing [Unknown]
  - Hypersensitivity [Recovering/Resolving]
  - Coagulopathy [Unknown]
  - Illness [Unknown]
  - Vomiting [Unknown]
  - Nausea [Unknown]
  - Headache [Unknown]
